FAERS Safety Report 16880675 (Version 1)
Quarter: 2019Q4

REPORT INFORMATION
  Report Type: Report from Study
  Country: FR (occurrence: FR)
  Receive Date: 20191003
  Receipt Date: 20191003
  Transmission Date: 20200122
  Serious: Yes (Other)
  Sender: FDA-Public Use
  Company Number: FR-BAYER-2019-175733

PATIENT
  Age: 38 Year
  Sex: Male

DRUGS (8)
  1. PIPERACILLIN. [Suspect]
     Active Substance: PIPERACILLIN SODIUM
  2. IMIPENEM [CILASTATIN SODIUM;IMIPENEM] [Suspect]
     Active Substance: CILASTATIN SODIUM\IMIPENEM
  3. TEICOPLANIN [Suspect]
     Active Substance: TEICOPLANIN
     Dosage: UNK
  4. AMOXICILLIN. [Suspect]
     Active Substance: AMOXICILLIN
     Dosage: UNK
  5. TAZOBACTAM [Suspect]
     Active Substance: TAZOBACTAM
  6. VANCOMYCIN [Suspect]
     Active Substance: VANCOMYCIN
  7. CILASTATIN [Suspect]
     Active Substance: CILASTATIN
     Dosage: UNK
  8. CIPROFLOXACIN. [Suspect]
     Active Substance: CIPROFLOXACIN
     Dosage: UNK

REACTIONS (4)
  - Sensitisation [None]
  - Therapeutic product cross-reactivity [None]
  - Drug reaction with eosinophilia and systemic symptoms [None]
  - Skin test positive [None]
